FAERS Safety Report 7178244-8 (Version None)
Quarter: 2010Q4

REPORT INFORMATION
  Report Type: 
  Country: None (occurrence: None)
  Receive Date: 20101220
  Receipt Date: 20101207
  Transmission Date: 20110411
  Serious: Yes (Hospitalization)
  Sender: FDA-Public Use
  Company Number: NL-MEDIMMUNE-MEDI-0011994

PATIENT
  Sex: Male
  Weight: 5.76 kg

DRUGS (5)
  1. SYNAGIS [Suspect]
     Route: 030
     Dates: start: 20101028, end: 20101123
  2. DIGOXIN [Concomitant]
     Dates: start: 20100101
  3. FUROSEMIDE [Concomitant]
     Dates: start: 20100101
  4. ACETYLSALICYLATE CALCIUM [Concomitant]
     Dates: start: 20100101
  5. SPIRONOLACTONE [Concomitant]
     Dates: start: 20100101

REACTIONS (1)
  - HYPOVENTILATION [None]
